FAERS Safety Report 4289240-2 (Version None)
Quarter: 2004Q1

REPORT INFORMATION
  Report Type: 
  Country: None (occurrence: None)
  Receive Date: 20040206
  Receipt Date: 20040128
  Transmission Date: 20041129
  Serious: Yes (Death)
  Sender: FDA-Public Use
  Company Number: US-JNJFOC-20030604567

PATIENT
  Age: 66 Year
  Sex: Male
  Weight: 90.7194 kg

DRUGS (10)
  1. LEVAQUIN [Suspect]
     Indication: PYREXIA
     Dosage: 250 MG, INTRAVENOUS
     Route: 042
     Dates: start: 20030528
  2. LEVAQUIN [Suspect]
     Indication: TACHYARRHYTHMIA
     Dosage: 250 MG, INTRAVENOUS
     Route: 042
     Dates: start: 20030528
  3. LASIX [Concomitant]
  4. NORVASC [Concomitant]
  5. ALLOPURINOL [Concomitant]
  6. FOLIC ACID [Concomitant]
  7. COUMADIN [Concomitant]
  8. LIPITOR [Concomitant]
  9. LOTENSIN [Concomitant]
  10. DIGOXIN [Concomitant]

REACTIONS (29)
  - BLOOD LACTATE DEHYDROGENASE INCREASED [None]
  - BLOOD LACTIC ACID DECREASED [None]
  - BRADYCARDIA [None]
  - CARDIAC ARREST [None]
  - COAGULOPATHY [None]
  - COLITIS [None]
  - CONFUSIONAL STATE [None]
  - DIALYSIS [None]
  - DISSEMINATED INTRAVASCULAR COAGULATION [None]
  - EXSANGUINATION [None]
  - HAEMOGLOBIN DECREASED [None]
  - HAEMORRHAGE [None]
  - HALLUCINATION [None]
  - HYPERSENSITIVITY [None]
  - HYPOTENSION [None]
  - OLIGURIA [None]
  - PSYCHOTIC DISORDER [None]
  - RASH ERYTHEMATOUS [None]
  - RASH PRURITIC [None]
  - RENAL FAILURE [None]
  - RENAL FAILURE ACUTE [None]
  - RENAL TUBULAR NECROSIS [None]
  - SKIN LESION [None]
  - THROMBOCYTOPENIA [None]
  - TREATMENT NONCOMPLIANCE [None]
  - URINARY TRACT INFECTION [None]
  - URTICARIA [None]
  - VASCULITIS [None]
  - WHITE BLOOD CELL COUNT INCREASED [None]
